FAERS Safety Report 12744894 (Version 1)
Quarter: 2016Q3

REPORT INFORMATION
  Report Type: Report from Study
  Country: US (occurrence: US)
  Receive Date: 20160915
  Receipt Date: 20160915
  Transmission Date: 20161109
  Serious: Yes (Other)
  Sender: FDA-Public Use
  Company Number: US-ROCHE-799993

PATIENT
  Age: 58 Year
  Sex: Female
  Weight: 89.3 kg

DRUGS (7)
  1. BEVACIZUMAB [Suspect]
     Active Substance: BEVACIZUMAB
     Indication: ENDOMETRIAL CANCER
     Dosage: OVER 30-90 MIN ON DAYS 1 AND 15
     Route: 042
     Dates: start: 20100726, end: 20100919
  2. TEMSIROLIMUS [Suspect]
     Active Substance: TEMSIROLIMUS
     Indication: ENDOMETRIAL CANCER
     Dosage: ON DAYS 1,8, 15, 22
     Route: 042
     Dates: start: 20100726, end: 20100922
  3. AMLODIPINE [Concomitant]
     Active Substance: AMLODIPINE BESYLATE
  4. ZOLOFT [Concomitant]
     Active Substance: SERTRALINE HYDROCHLORIDE
  5. ROBITUSSIN PRODUCT NOS [Concomitant]
  6. WARFARIN [Concomitant]
     Active Substance: WARFARIN
  7. AMBIEN [Concomitant]
     Active Substance: ZOLPIDEM TARTRATE

REACTIONS (5)
  - Dyspnoea [Not Recovered/Not Resolved]
  - Lung infiltration [Unknown]
  - Pneumonitis [Not Recovered/Not Resolved]
  - Hypophosphataemia [Unknown]
  - Hypertension [Unknown]

NARRATIVE: CASE EVENT DATE: 20100929
